FAERS Safety Report 8326772-1 (Version None)
Quarter: 2012Q2

REPORT INFORMATION
  Report Type: 
  Country: None (occurrence: None)
  Receive Date: 20120501
  Receipt Date: 20120424
  Transmission Date: 20120825
  Serious: No
  Sender: FDA-Public Use
  Company Number: US-B.I. PHARMACEUTICALS,INC./RIDGEFIELD-2012-BP-09355BP

PATIENT
  Sex: Female
  Weight: 136 kg

DRUGS (3)
  1. PRADAXA [Suspect]
     Indication: THROMBOSIS PROPHYLAXIS
     Dosage: 300 MG
     Route: 048
  2. PRADAXA [Suspect]
  3. INSULIN [Concomitant]

REACTIONS (7)
  - LACERATION [None]
  - CONTUSION [None]
  - SKIN HAEMORRHAGE [None]
  - HAEMORRHAGE [None]
  - MALAISE [None]
  - DISCOMFORT [None]
  - ABDOMINAL PAIN UPPER [None]
